FAERS Safety Report 8213373 (Version 2)
Quarter: 2012Q4

REPORT INFORMATION
  Report Type: 
  Country: US (occurrence: US)
  Receive Date: 20111030
  Receipt Date: 20121023
  Transmission Date: 20130627
  Serious: Yes (Other)
  Sender: FDA-Public Use
  Company Number: US-AMGEN-USASP2011021192

PATIENT
  Age: 50 Year
  Sex: Male
  Weight: 74.83 kg

DRUGS (2)
  1. ENBREL [Suspect]
     Indication: PSORIASIS
     Dosage: 50 mg, qwk
     Route: 058
     Dates: start: 20040513, end: 20101201
  2. ADALIMUMAB [Concomitant]
     Dosage: UNK
     Dates: start: 2008

REACTIONS (1)
  - Hodgkin^s disease [Unknown]
